FAERS Safety Report 16272301 (Version 2)
Quarter: 2020Q4

REPORT INFORMATION
  Report Type: Spontaneous
  Country: US (occurrence: US)
  Receive Date: 20190503
  Receipt Date: 20201029
  Transmission Date: 20210113
  Serious: Yes (Death, Hospitalization, Other)
  Sender: FDA-Public Use
  Company Number: US-ASTRAZENECA-2019SE59489

PATIENT
  Age: 21573 Day
  Sex: Female
  Weight: 91.6 kg

DRUGS (72)
  1. FUROSEMIDE. [Concomitant]
     Active Substance: FUROSEMIDE
     Indication: FLUID RETENTION
     Dates: start: 20030228, end: 20170427
  2. HYDRALAZINE [Concomitant]
     Active Substance: HYDRALAZINE HYDROCHLORIDE
     Indication: BLOOD PRESSURE ABNORMAL
     Dates: start: 20120803, end: 20170418
  3. OXYCODONE [Concomitant]
     Active Substance: OXYCODONE
     Dates: start: 20100409
  4. NORVASC [Concomitant]
     Active Substance: AMLODIPINE BESYLATE
     Dates: start: 20031008
  5. SEREVENT DISKUS [Concomitant]
     Active Substance: SALMETEROL XINAFOATE
     Dates: start: 20031205
  6. ZOLOFT [Concomitant]
     Active Substance: SERTRALINE HYDROCHLORIDE
     Dates: start: 20050808
  7. HYDROMORPHONE [Concomitant]
     Active Substance: HYDROMORPHONE
  8. JANUVIA [Concomitant]
     Active Substance: SITAGLIPTIN PHOSPHATE
  9. FERROUS SULFATE. [Concomitant]
     Active Substance: FERROUS SULFATE
  10. BENADRYL [Concomitant]
     Active Substance: DIPHENHYDRAMINE HYDROCHLORIDE
  11. OMEPRAZOLE. [Concomitant]
     Active Substance: OMEPRAZOLE
     Dosage: 40.0MG UNKNOWN
     Route: 065
     Dates: start: 201109
  12. ENDOCET [Concomitant]
     Active Substance: ACETAMINOPHEN\OXYCODONE HYDROCHLORIDE
     Dates: start: 20020122
  13. NICARDIPINE [Concomitant]
     Active Substance: NICARDIPINE
     Dates: start: 20150222
  14. ALPRAZOLAM. [Concomitant]
     Active Substance: ALPRAZOLAM
     Dates: start: 20040903
  15. VYTORIN [Concomitant]
     Active Substance: EZETIMIBE\SIMVASTATIN
     Dates: start: 20051130
  16. TRIAMCINOLONE [Concomitant]
     Active Substance: TRIAMCINOLONE
  17. PANTOPRAZOLE [Concomitant]
     Active Substance: PANTOPRAZOLE
  18. ONDANSETRON [Concomitant]
     Active Substance: ONDANSETRON
  19. BUDESONIDE. [Concomitant]
     Active Substance: BUDESONIDE
  20. NEXIUM [Suspect]
     Active Substance: ESOMEPRAZOLE MAGNESIUM
     Indication: GASTROOESOPHAGEAL REFLUX DISEASE
     Dosage: GENERIC
     Route: 065
     Dates: start: 20150302, end: 20150402
  21. NEXIUM [Suspect]
     Active Substance: ESOMEPRAZOLE MAGNESIUM
     Indication: GASTROOESOPHAGEAL REFLUX DISEASE
     Dosage: 40.0MG UNKNOWN
     Route: 048
     Dates: start: 20050202
  22. AMITRIPTYLINE [Concomitant]
     Active Substance: AMITRIPTYLINE
     Indication: DEPRESSION
     Dates: start: 20020820, end: 20170317
  23. IBUPROFEN. [Concomitant]
     Active Substance: IBUPROFEN
     Dates: start: 20020613
  24. COMBIVENT [Concomitant]
     Active Substance: ALBUTEROL SULFATE\IPRATROPIUM BROMIDE
     Dates: start: 20131011
  25. TIZANIDINE. [Concomitant]
     Active Substance: TIZANIDINE
  26. NEXIUM [Suspect]
     Active Substance: ESOMEPRAZOLE MAGNESIUM
     Indication: GASTROOESOPHAGEAL REFLUX DISEASE
     Route: 048
  27. RANITIDINE. [Concomitant]
     Active Substance: RANITIDINE
     Dates: start: 20031013, end: 20031113
  28. METRONIDAZOLE. [Concomitant]
     Active Substance: METRONIDAZOLE
     Dates: start: 20010925
  29. DIFLUCAN [Concomitant]
     Active Substance: FLUCONAZOLE
     Dates: start: 20011009
  30. WARFARIN [Concomitant]
     Active Substance: WARFARIN
     Dates: start: 20050516
  31. LORAZEPAM. [Concomitant]
     Active Substance: LORAZEPAM
  32. BENAZEPRIL [Concomitant]
     Active Substance: BENAZEPRIL HYDROCHLORIDE
  33. CALCITRIOL. [Concomitant]
     Active Substance: CALCITRIOL
  34. NEXIUM [Suspect]
     Active Substance: ESOMEPRAZOLE MAGNESIUM
     Indication: GASTROOESOPHAGEAL REFLUX DISEASE
     Dosage: 40.0MG UNKNOWN
     Route: 048
     Dates: start: 20031023
  35. LEVAQUIN [Concomitant]
     Active Substance: LEVOFLOXACIN
     Dates: start: 20010505
  36. METFORMIN [Concomitant]
     Active Substance: METFORMIN HYDROCHLORIDE
     Dates: start: 20031023
  37. GLYBURIDE. [Concomitant]
     Active Substance: GLYBURIDE
  38. NAPROXEN. [Concomitant]
     Active Substance: NAPROXEN
  39. TERAZOSIN [Concomitant]
     Active Substance: TERAZOSIN HYDROCHLORIDE
  40. PERIDEX [Concomitant]
     Active Substance: CHLORHEXIDINE GLUCONATE
  41. AZITHROMYCIN ANHYDROUS. [Concomitant]
     Active Substance: AZITHROMYCIN ANHYDROUS
     Indication: INFECTION
     Dates: start: 20161218, end: 20170220
  42. SULFAMETHOXAZOLE [Concomitant]
     Active Substance: SULFAMETHOXAZOLE
     Dates: start: 20130118
  43. CEPHALEXIN. [Concomitant]
     Active Substance: CEPHALEXIN
     Dates: start: 20001214
  44. DELTASONE [Concomitant]
     Active Substance: PREDNISONE
     Dates: start: 20010925
  45. DICYCLOMINE [Concomitant]
     Active Substance: DICYCLOMINE HYDROCHLORIDE
     Dates: start: 20031204
  46. TALWIN [Concomitant]
     Active Substance: PENTAZOCINE LACTATE
     Dates: start: 20041108
  47. POTASSIUM CHLORIDE. [Concomitant]
     Active Substance: POTASSIUM CHLORIDE
     Dates: start: 20050108
  48. NOVOLIN NOS [Concomitant]
     Active Substance: INSULIN HUMAN
     Dates: start: 20050615
  49. GABAPENTIN. [Concomitant]
     Active Substance: GABAPENTIN
     Dates: start: 20060214
  50. ADVAIR HFA [Concomitant]
     Active Substance: FLUTICASONE PROPIONATE\SALMETEROL XINAFOATE
  51. CELECOXIB. [Concomitant]
     Active Substance: CELECOXIB
  52. NITROGLYCERIN. [Concomitant]
     Active Substance: NITROGLYCERIN
  53. MUPIROCIN. [Concomitant]
     Active Substance: MUPIROCIN
  54. NEXIUM 24HR [Suspect]
     Active Substance: ESOMEPRAZOLE MAGNESIUM
     Route: 048
  55. TRAMADOL. [Concomitant]
     Active Substance: TRAMADOL
     Indication: PAIN
     Dates: start: 20040826, end: 20170119
  56. SPIRONOLACTONE. [Concomitant]
     Active Substance: SPIRONOLACTONE
     Dates: start: 20041102
  57. FENTANYL. [Concomitant]
     Active Substance: FENTANYL
     Dates: start: 20050406
  58. LISINOPRIL. [Concomitant]
     Active Substance: LISINOPRIL
  59. SKELAXIN [Concomitant]
     Active Substance: METAXALONE
  60. LYRICA [Concomitant]
     Active Substance: PREGABALIN
  61. VENTOLIN [Concomitant]
     Active Substance: ALBUTEROL SULFATE
  62. DULERA [Concomitant]
     Active Substance: FORMOTEROL FUMARATE DIHYDRATE\MOMETASONE FUROATE
  63. TAMIFLU [Concomitant]
     Active Substance: OSELTAMIVIR PHOSPHATE
  64. NEXIUM [Suspect]
     Active Substance: ESOMEPRAZOLE MAGNESIUM
     Indication: GASTROOESOPHAGEAL REFLUX DISEASE
     Route: 048
     Dates: start: 20031023, end: 20160915
  65. PROPOXYPHEN [Concomitant]
     Dates: start: 20001214
  66. CARISOPRODOL. [Concomitant]
     Active Substance: CARISOPRODOL
     Dates: start: 20040123
  67. FLOVENT [Concomitant]
     Active Substance: FLUTICASONE PROPIONATE
     Dates: start: 20040216
  68. LOVENOX [Concomitant]
     Active Substance: ENOXAPARIN SODIUM
     Dates: start: 20050615
  69. DICLOFENAC [Concomitant]
     Active Substance: DICLOFENAC
     Dates: start: 20050922
  70. METOCLOPRAMIDE. [Concomitant]
     Active Substance: METOCLOPRAMIDE
  71. SIMVASTATIN. [Concomitant]
     Active Substance: SIMVASTATIN
  72. CALCIUM ACETATE. [Concomitant]
     Active Substance: CALCIUM ACETATE

REACTIONS (6)
  - End stage renal disease [Unknown]
  - Hyperparathyroidism secondary [Unknown]
  - Chronic kidney disease [Unknown]
  - Acute kidney injury [Unknown]
  - Renal failure [Unknown]
  - Nephrogenic anaemia [Unknown]

NARRATIVE: CASE EVENT DATE: 20130316
